FAERS Safety Report 25471406 (Version 1)
Quarter: 2025Q2

REPORT INFORMATION
  Report Type: Spontaneous
  Country: US (occurrence: US)
  Receive Date: 20250624
  Receipt Date: 20250624
  Transmission Date: 20250717
  Serious: No
  Sender: GLENMARK
  Company Number: US-GLENMARK PHARMACEUTICALS-2024GMK092655

PATIENT

DRUGS (15)
  1. MUPIROCIN [Suspect]
     Active Substance: MUPIROCIN
     Indication: Staphylococcal infection
     Dosage: UNK, BID (SMALL AMOUNT TWICE A DAY)
     Route: 045
     Dates: start: 20240725, end: 20240730
  2. MUPIROCIN [Suspect]
     Active Substance: MUPIROCIN
     Indication: Preoperative care
  3. LATANOPROST [Concomitant]
     Active Substance: LATANOPROST
     Indication: Eye disorder
     Route: 047
  4. BRIMONIDINE [Concomitant]
     Active Substance: BRIMONIDINE TARTRATE
     Indication: Eye disorder
     Dosage: 1 DROP, BID (1 DROP IN BOTH EYES TWICE A DAY)
     Route: 047
  5. DORZOLAMIDE [Concomitant]
     Active Substance: DORZOLAMIDE
     Indication: Eye disorder
     Dosage: 1 DROP, BID (1 DROP IN BOTH EYES TWICE A DAY)
     Route: 047
  6. LISINOPRIL AND HYDROCHLOROTHIAZIDE [Concomitant]
     Active Substance: HYDROCHLOROTHIAZIDE\LISINOPRIL
     Indication: Blood pressure abnormal
     Route: 065
  7. ARMOUR THYROID [Concomitant]
     Active Substance: THYROID, PORCINE
     Indication: Product used for unknown indication
     Route: 065
  8. CELECOXIB [Concomitant]
     Active Substance: CELECOXIB
     Indication: Product used for unknown indication
     Route: 065
  9. GABAPENTIN [Concomitant]
     Active Substance: GABAPENTIN
     Indication: Product used for unknown indication
     Dosage: 2 DOSAGE FORM, OD (300 MG, 2 CAPSULES EVERY NIGHT)
     Route: 065
  10. BUPROPION [Concomitant]
     Active Substance: BUPROPION
     Indication: Product used for unknown indication
     Dosage: 300 MILLIGRAM, QD (300 MG, 24-HOUR TABLET, 1 BY MOUTH EVERY DAY BEFORE NOON)
     Route: 048
  11. FLUOXETINE [Concomitant]
     Active Substance: FLUOXETINE HYDROCHLORIDE
     Indication: Product used for unknown indication
     Dosage: 1 DOSAGE FORM, QD (40 MG CAPSULE, 1 BY MOUTH EVERY DAY BEFORE NOON)
     Route: 048
  12. CALCIUM [Concomitant]
     Active Substance: CALCIUM
     Indication: Product used for unknown indication
     Dosage: 1 DOSAGE FORM, BID (600 MG, 1 TABLET TWICE A DAY)
     Route: 065
  13. MAGNESIUM OXIDE [Concomitant]
     Active Substance: MAGNESIUM OXIDE
     Indication: Product used for unknown indication
     Dosage: 2 DOSAGE FORM, BID (420 MG, 2 TABLETS BY MOUTH TWICE A DAY)
     Route: 048
  14. VITAMIN D3 [Concomitant]
     Active Substance: CHOLECALCIFEROL
     Indication: Product used for unknown indication
     Dosage: 21000 INTERNATIONAL UNIT, QW (21,000 IU EVERY WEEK, 3,000 IU EVERY DAY)
     Route: 065
  15. NIACINAMIDE [Concomitant]
     Active Substance: NIACINAMIDE
     Indication: Product used for unknown indication
     Dosage: 1 DOSAGE FORM, BID (500 MG TABLET, 1 BY MOUTH TWICE A DAY)
     Route: 048

REACTIONS (2)
  - Product use in unapproved indication [Unknown]
  - Product use issue [Unknown]

NARRATIVE: CASE EVENT DATE: 20240725
